FAERS Safety Report 10756811 (Version 3)
Quarter: 2015Q1

REPORT INFORMATION
  Report Type: Spontaneous
  Country: JP (occurrence: JP)
  Receive Date: 20150203
  Receipt Date: 20150217
  Transmission Date: 20150721
  Serious: Yes (Hospitalization)
  Sender: FDA-Public Use
  Company Number: JP-ROCHE-1529576

PATIENT
  Age: 89 Year
  Sex: Female
  Weight: 42 kg

DRUGS (14)
  1. SENNOSIDE [Concomitant]
     Active Substance: SENNOSIDES
     Indication: INFLUENZA
     Route: 048
  2. URSO (JAPAN) [Concomitant]
     Indication: INFLUENZA
     Route: 048
  3. MYSLEE [Concomitant]
     Active Substance: ZOLPIDEM TARTRATE
     Indication: INFLUENZA
     Route: 048
  4. LIDOCAINE. [Concomitant]
     Active Substance: LIDOCAINE
     Indication: INFLUENZA
     Route: 061
     Dates: start: 20140922
  5. TULOBUTEROL [Concomitant]
     Active Substance: TULOBUTEROL
     Indication: INFLUENZA
     Route: 062
  6. FESIN (JAPAN) [Concomitant]
     Active Substance: IRON SUCROSE
     Dosage: DOSAGE IS UNCERTAIN.
     Route: 042
  7. WARFARIN POTASSIUM [Concomitant]
     Active Substance: WARFARIN POTASSIUM
     Indication: INFLUENZA
     Route: 048
     Dates: start: 20141212
  8. TAMIFLU [Suspect]
     Active Substance: OSELTAMIVIR PHOSPHATE
     Indication: INFLUENZA
     Route: 048
     Dates: start: 20150109, end: 20150109
  9. TAMIFLU [Suspect]
     Active Substance: OSELTAMIVIR PHOSPHATE
     Indication: INFLUENZA
     Route: 048
     Dates: start: 20150112, end: 20150112
  10. EBRANTIL [Concomitant]
     Active Substance: URAPIDIL
     Indication: INFLUENZA
     Route: 048
  11. MAGMITT [Concomitant]
     Active Substance: MAGNESIUM OXIDE
     Indication: INFLUENZA
     Route: 048
  12. RISUMIC [Concomitant]
     Active Substance: AMEZINIUM METILSULFATE
     Indication: INFLUENZA
     Dosage: IN FRONT OF HD HASTE
     Route: 048
     Dates: start: 20141031
  13. NESP [Concomitant]
     Active Substance: DARBEPOETIN ALFA
     Dosage: DOSAGE IS UNCERTAIN.
     Route: 065
  14. TAKEPRON [Concomitant]
     Active Substance: LANSOPRAZOLE
     Indication: INFLUENZA
     Route: 048

REACTIONS (3)
  - Neutrophil count decreased [Recovered/Resolved]
  - Erythema [Recovered/Resolved]
  - Pyrexia [Recovered/Resolved]

NARRATIVE: CASE EVENT DATE: 20150119
